FAERS Safety Report 14369445 (Version 1)
Quarter: 2018Q1

REPORT INFORMATION
  Report Type: Report from Study
  Country: US (occurrence: US)
  Receive Date: 20180110
  Receipt Date: 20180110
  Transmission Date: 20180509
  Serious: Yes (Death)
  Sender: FDA-Public Use
  Company Number: US-VIFOR (INTERNATIONAL) INC.-VIT-2017-14525

PATIENT
  Sex: Female

DRUGS (28)
  1. DULCOLAX NOS [Concomitant]
     Active Substance: BISACODYL OR DOCUSATE SODIUM
  2. DOCQLAX [Concomitant]
     Active Substance: DOCUSATE SODIUM\SENNOSIDES
  3. CRESTOR [Concomitant]
     Active Substance: ROSUVASTATIN CALCIUM
  4. RENVELA [Concomitant]
     Active Substance: SEVELAMER CARBONATE
  5. MIRALAX [Concomitant]
     Active Substance: POLYETHYLENE GLYCOL 3350
  6. ACETYLSALICYLIC ACID [Concomitant]
     Active Substance: ASPIRIN
  7. ALENDRONATE SODIUM. [Concomitant]
     Active Substance: ALENDRONATE SODIUM
  8. LOSARTAN POTASSIUM. [Concomitant]
     Active Substance: LOSARTAN POTASSIUM
  9. HUMALOG [Concomitant]
     Active Substance: INSULIN LISPRO
  10. TRESIBA [Concomitant]
     Active Substance: INSULIN DEGLUDEC
  11. ERGOCALCIFEROL. [Concomitant]
     Active Substance: ERGOCALCIFEROL
  12. CLONIDINE. [Concomitant]
     Active Substance: CLONIDINE
  13. ISOSORBIDE MONONITRATE. [Concomitant]
     Active Substance: ISOSORBIDE MONONITRATE
  14. METHOCARBAMOL. [Concomitant]
     Active Substance: METHOCARBAMOL
  15. NADOLOL. [Concomitant]
     Active Substance: NADOLOL
  16. LINZESS [Concomitant]
     Active Substance: LINACLOTIDE
  17. SENSIPAR [Concomitant]
     Active Substance: CINACALCET HYDROCHLORIDE
  18. SALBUTAMOL [Concomitant]
     Active Substance: ALBUTEROL
  19. GENERALAC [Concomitant]
     Dosage: 10G/15ML
  20. NIFEDIPINE. [Concomitant]
     Active Substance: NIFEDIPINE
  21. VELTASSA [Suspect]
     Active Substance: PATIROMER
     Indication: HYPERKALAEMIA
     Dates: start: 20160804, end: 201712
  22. CALCITRIOL. [Concomitant]
     Active Substance: CALCITRIOL
  23. NADOLOL. [Concomitant]
     Active Substance: NADOLOL
  24. OMEPRAZOLE. [Concomitant]
     Active Substance: OMEPRAZOLE
  25. REGLAN [Concomitant]
     Active Substance: METOCLOPRAMIDE HYDROCHLORIDE
  26. ROSUVASTATIN. [Concomitant]
     Active Substance: ROSUVASTATIN
  27. OMEPRAZOLE. [Concomitant]
     Active Substance: OMEPRAZOLE
  28. ONE TOUCH [Concomitant]

REACTIONS (1)
  - Death [Fatal]
